FAERS Safety Report 10510325 (Version 1)
Quarter: 2014Q4

REPORT INFORMATION
  Report Type: Spontaneous
  Country: US (occurrence: None)
  Receive Date: 20141008
  Receipt Date: 20141008
  Transmission Date: 20150528
  Serious: Yes (Other)
  Sender: FDA-Public Use
  Company Number: RI14-357-AE

PATIENT
  Age: 69 Year
  Sex: Female
  Weight: 71.67 kg

DRUGS (5)
  1. LISINOPRIL. [Concomitant]
     Active Substance: LISINOPRIL
  2. PREDNISONE. [Concomitant]
     Active Substance: PREDNISONE
  3. PRAVASTATIN [Concomitant]
     Active Substance: PRAVASTATIN\PRAVASTATIN SODIUM
  4. CARVEDILOL. [Concomitant]
     Active Substance: CARVEDILOL
  5. SILDENAFIL TABLETS [Suspect]
     Active Substance: SILDENAFIL
     Indication: HYPERTENSION
     Dosage: 3 TABLETS A DAY
     Route: 048
     Dates: start: 20140722, end: 20140918

REACTIONS (12)
  - Nausea [None]
  - Dyspnoea [None]
  - Swelling face [None]
  - Product quality issue [None]
  - Malaise [None]
  - Swelling [None]
  - Product label issue [None]
  - Feeling abnormal [None]
  - Erythema [None]
  - Product formulation issue [None]
  - Product substitution issue [None]
  - Flushing [None]

NARRATIVE: CASE EVENT DATE: 201409
